FAERS Safety Report 9405469 (Version 2)
Quarter: 2013Q3

REPORT INFORMATION
  Report Type: Report from Study
  Country: CA (occurrence: CA)
  Receive Date: 20130717
  Receipt Date: 20130808
  Transmission Date: 20140515
  Serious: Yes (Hospitalization, Other)
  Sender: FDA-Public Use
  Company Number: CA-ABBOTT-13P-028-1119512-00

PATIENT
  Age: 30 Year
  Sex: Male

DRUGS (1)
  1. HUMIRA [Suspect]
     Indication: CROHN^S DISEASE
     Route: 058
     Dates: start: 20130502

REACTIONS (7)
  - Oedema mouth [Recovered/Resolved]
  - Hypersensitivity [Unknown]
  - Urticaria [Recovered/Resolved]
  - Oedema peripheral [Recovered/Resolved]
  - Chest pain [Recovered/Resolved]
  - Rash pruritic [Unknown]
  - Rash macular [Unknown]
